FAERS Safety Report 8189621-0 (Version None)
Quarter: 2012Q1

REPORT INFORMATION
  Report Type: 
  Country: None (occurrence: None)
  Receive Date: 20120307
  Receipt Date: 20120228
  Transmission Date: 20120608
  Serious: Yes (Other)
  Sender: FDA-Public Use
  Company Number: US-BRISTOL-MYERS SQUIBB COMPANY-16422677

PATIENT
  Sex: Female
  Weight: 48 kg

DRUGS (12)
  1. CITALOPRAM [Concomitant]
  2. ABILIFY [Suspect]
     Dosage: INCREASED TO 10MG AND THEN INCREASED TO 15MG
  3. LORAZEPAM [Concomitant]
  4. PRAVASTATIN SODIUM [Concomitant]
  5. LABETALOL HCL [Concomitant]
  6. SIMVASTATIN [Concomitant]
  7. OMEPRAZOLE [Concomitant]
  8. PRAZOSIN HYDROCHLORIDE [Concomitant]
  9. SYMBICORT [Concomitant]
  10. SEROQUEL [Concomitant]
  11. KLONOPIN [Concomitant]
  12. ENABLEX [Concomitant]

REACTIONS (1)
  - PSYCHOTIC DISORDER [None]
